FAERS Safety Report 9504760 (Version 1)
Quarter: 2013Q3

REPORT INFORMATION
  Report Type: Report from Study
  Country: MA (occurrence: MA)
  Receive Date: 20130906
  Receipt Date: 20130906
  Transmission Date: 20140515
  Serious: Yes (Death)
  Sender: FDA-Public Use
  Company Number: MA-BAXTER-2013BAX035410

PATIENT
  Sex: 0

DRUGS (8)
  1. ENDOXAN VIALS 1G [Suspect]
     Indication: HODGKIN^S DISEASE
     Dosage: DAYS 1 AND 8
     Route: 042
  2. VINCRISTINE [Suspect]
     Indication: HODGKIN^S DISEASE
     Dosage: ON DAYS 1, 8, AND 15
     Route: 042
  3. VINCRISTINE [Suspect]
     Dosage: DAYS 1 AND 8
     Route: 042
  4. ADRIAMYCIN [Suspect]
     Indication: HODGKIN^S DISEASE
     Dosage: ON DAYS 1 AND 15
     Route: 042
  5. PROCARBAZINE [Suspect]
     Indication: HODGKIN^S DISEASE
     Dosage: ON DAYS 1-14
     Route: 048
  6. PROCARBAZINE [Suspect]
     Dosage: DAYS 1-14
     Route: 048
  7. PREDNISONE [Suspect]
     Indication: HODGKIN^S DISEASE
     Dosage: ON DAYS 1-14
     Route: 048
  8. PREDNISONE [Suspect]
     Dosage: DAYS 1-14
     Route: 048

REACTIONS (1)
  - Toxicity to various agents [Fatal]
